FAERS Safety Report 14142068 (Version 5)
Quarter: 2017Q4

REPORT INFORMATION
  Report Type: Spontaneous
  Country: CA (occurrence: CA)
  Receive Date: 20171030
  Receipt Date: 20171115
  Transmission Date: 20180321
  Serious: Yes (Hospitalization, Other)
  Sender: FDA-Public Use
  Company Number: CA-HIKMA PHARMACEUTICALS CO. LTD-2017CA014714

PATIENT

DRUGS (6)
  1. INFLIXIMAB HOSPIRA [Suspect]
     Active Substance: INFLIXIMAB
     Dosage: 400 MG, CYCLIC (EVERY 0,2,6 WEEKS, THEN EVERY 8 WEEKS)
     Route: 042
     Dates: start: 20170519, end: 20170830
  2. LOMOTIL [Concomitant]
     Active Substance: ATROPINE SULFATE\DIPHENOXYLATE HYDROCHLORIDE
     Dosage: UNK
     Dates: start: 2015
  3. IRON [Concomitant]
     Active Substance: IRON
     Dosage: UNKUNK, AS NEEDED
  4. IMURAN [Concomitant]
     Active Substance: AZATHIOPRINE
     Dosage: 2 DF (TABLETS), DAILY
     Route: 065
     Dates: start: 201611
  5. TYLENOL WITH CODEINE [Concomitant]
     Active Substance: ACETAMINOPHEN\CODEINE PHOSPHATE
     Dosage: UNK, AS NEEDED
  6. PREDNISONE. [Concomitant]
     Active Substance: PREDNISONE
     Dosage: 25 MG, 1X/DAY
     Route: 048
     Dates: start: 201606

REACTIONS (8)
  - Haematochezia [Unknown]
  - Diarrhoea [Unknown]
  - Hypersensitivity [Unknown]
  - Drug effect incomplete [Unknown]
  - Gastrointestinal obstruction [Unknown]
  - Vomiting [Unknown]
  - Dyspnoea [Unknown]
  - Abdominal pain upper [Recovered/Resolved]
